FAERS Safety Report 6393246-7 (Version None)
Quarter: 2009Q4

REPORT INFORMATION
  Report Type: 
  Country: None (occurrence: None)
  Receive Date: 20091008
  Receipt Date: 20090926
  Transmission Date: 20100525
  Serious: Yes (Other)
  Sender: FDA-Public Use
  Company Number: US-JNJFOC-20091001397

PATIENT
  Age: 2 Year
  Sex: Female
  Weight: 12.25 kg

DRUGS (3)
  1. TYLENOL (CAPLET) [Suspect]
     Route: 048
  2. TYLENOL (CAPLET) [Suspect]
     Indication: PYREXIA
     Dosage: 60-80 MG TWICE
     Route: 048
  3. PENICILLIN [Concomitant]
     Indication: PHARYNGITIS STREPTOCOCCAL

REACTIONS (3)
  - PRURITUS [None]
  - RASH GENERALISED [None]
  - TRANSMISSION OF AN INFECTIOUS AGENT VIA A MEDICINAL PRODUCT [None]
